FAERS Safety Report 4803333-X (Version None)
Quarter: 2005Q4

REPORT INFORMATION
  Report Type: 
  Country: None (occurrence: None)
  Receive Date: 20051013
  Receipt Date: 20050927
  Transmission Date: 20060501
  Serious: Yes (Hospitalization)
  Sender: FDA-Public Use
  Company Number: USA050392235

PATIENT
  Age: 88 Year
  Sex: Female

DRUGS (3)
  1. FORTEO [Suspect]
     Indication: OSTEOPOROSIS
     Dates: start: 20030101, end: 20041201
  2. WARFARIN [Concomitant]
  3. ALENDRONATE SODIUM [Concomitant]

REACTIONS (3)
  - BACK DISORDER [None]
  - BACK PAIN [None]
  - SPINAL FRACTURE [None]
